FAERS Safety Report 19370343 (Version 2)
Quarter: 2021Q2

REPORT INFORMATION
  Report Type: Report from Study
  Country: AR (occurrence: AR)
  Receive Date: 20210603
  Receipt Date: 20210618
  Transmission Date: 20210717
  Serious: Yes (Hospitalization, Other)
  Sender: FDA-Public Use
  Company Number: NVSC2021AR121414

PATIENT
  Age: 70 Year
  Sex: Female

DRUGS (2)
  1. LOTRIAL [Suspect]
     Active Substance: ENALAPRIL MALEATE
     Indication: PRODUCT USED FOR UNKNOWN INDICATION
     Dosage: UNK
     Route: 065
  2. GALVUS MET [Suspect]
     Active Substance: METFORMIN HYDROCHLORIDE\VILDAGLIPTIN
     Indication: DIABETES MELLITUS
     Dosage: 2 DF, QD (50/850)
     Route: 065
     Dates: start: 2013

REACTIONS (8)
  - Drug hypersensitivity [Unknown]
  - Yellow skin [Unknown]
  - Biliary obstruction [Unknown]
  - Cholelithiasis [Unknown]
  - Pneumonia [Unknown]
  - Cough [Unknown]
  - Weight increased [Unknown]
  - Malaise [Unknown]
